FAERS Safety Report 9606149 (Version 1)
Quarter: 2013Q4

REPORT INFORMATION
  Report Type: Spontaneous
  Country: DE (occurrence: DE)
  Receive Date: 20131008
  Receipt Date: 20131008
  Transmission Date: 20140711
  Serious: Yes (Other)
  Sender: FDA-Public Use
  Company Number: DE-GILEAD-2013-0084872

PATIENT
  Age: 32 Year
  Sex: Female

DRUGS (8)
  1. ENALAPRIL [Suspect]
     Indication: HYPERTENSION
     Dosage: 10 MG, BID
     Route: 048
     Dates: start: 20080605, end: 20080918
  2. CARMEN /01366402/ [Suspect]
     Indication: HYPERTENSION
     Dosage: 10 MG, BID
     Route: 048
     Dates: start: 20080605, end: 20080918
  3. BELOC                              /00376903/ [Concomitant]
     Indication: HYPERTENSION
     Dosage: 47.5 MG, BID
     Route: 048
     Dates: start: 20080605, end: 20090226
  4. NIFEDIPINE [Concomitant]
     Indication: HYPERTENSION
     Dosage: 40 MG, QD
     Route: 048
     Dates: start: 20080920, end: 20090226
  5. METHYLDOPA [Concomitant]
     Indication: HYPERTENSION
     Dosage: 250 MG, TID
     Route: 048
     Dates: start: 20080920, end: 20090226
  6. TRUVADA [Suspect]
     Indication: HIV INFECTION
     Dosage: 1 DF, QD
     Route: 048
  7. KALETRA [Suspect]
     Indication: HIV INFECTION
     Dosage: 2 DF, QD
     Route: 048
  8. VOTUM /01635402/ [Suspect]
     Indication: HYPERTENSION
     Dosage: 20 MG, BID
     Route: 048
     Dates: start: 20080605, end: 20090918

REACTIONS (3)
  - Polyhydramnios [Unknown]
  - Exposure during pregnancy [Recovered/Resolved]
  - Hypertension [Unknown]
